FAERS Safety Report 8988955 (Version 1)
Quarter: 2012Q4

REPORT INFORMATION
  Report Type: Spontaneous
  Country: US (occurrence: None)
  Receive Date: 20121224
  Receipt Date: 20121224
  Transmission Date: 20130627
  Serious: Yes (Other)
  Sender: FDA-Public Use
  Company Number: None

PATIENT
  Sex: Female
  Weight: 73 kg

DRUGS (1)
  1. REMBRANDT 2 HOUR WHITENING KIT [Suspect]
     Indication: DENTAL CARE
     Dosage: 3ampules,every 20 min, oral
     Route: 048
     Dates: start: 20121204, end: 20121204

REACTIONS (6)
  - Gingival pain [None]
  - Oral pain [None]
  - Gingival swelling [None]
  - Gingival discolouration [None]
  - Stomatitis [None]
  - Chemical burn of gastrointestinal tract [None]
